FAERS Safety Report 6498799-6 (Version None)
Quarter: 2009Q4

REPORT INFORMATION
  Report Type: 
  Country: None (occurrence: None)
  Receive Date: 20091215
  Receipt Date: 20091204
  Transmission Date: 20100525
  Serious: Yes (Other)
  Sender: FDA-Public Use
  Company Number: CHPA2009SE23324

PATIENT
  Age: 6 Year
  Sex: Female

DRUGS (5)
  1. TAVEGYL (NCH) [Suspect]
     Indication: URTICARIA
     Dosage: UNK, UNK
     Route: 048
     Dates: start: 20091117
  2. DRUG THERAPY NOS [Concomitant]
     Indication: INFLUENZA
  3. COCILLANA-ETYFIN /OLD FORM/ [Concomitant]
     Dosage: 4 MG,
     Dates: start: 20091116
  4. BETAPRED [Concomitant]
  5. AERIUS [Concomitant]
     Dosage: 0.5 MG, UNK
     Route: 048

REACTIONS (4)
  - NAUSEA [None]
  - PAIN [None]
  - PRURITUS [None]
  - URTICARIA [None]
